FAERS Safety Report 24881280 (Version 2)
Quarter: 2025Q1

REPORT INFORMATION
  Report Type: Spontaneous
  Country: FR (occurrence: FR)
  Receive Date: 20250124
  Receipt Date: 20250303
  Transmission Date: 20250409
  Serious: No
  Sender: ROCHE
  Company Number: FR-ROCHE-10000186014

PATIENT
  Age: 27 Year
  Sex: Female

DRUGS (2)
  1. TAMIFLU [Suspect]
     Active Substance: OSELTAMIVIR PHOSPHATE
     Indication: Influenza
     Route: 050
  2. TAMIFLU [Suspect]
     Active Substance: OSELTAMIVIR PHOSPHATE
     Indication: Colitis ulcerative

REACTIONS (3)
  - Maternal exposure timing unspecified [Unknown]
  - Off label use [Unknown]
  - No adverse event [Unknown]
